FAERS Safety Report 15284307 (Version 1)
Quarter: 2018Q3

REPORT INFORMATION
  Report Type: Spontaneous
  Country: JP (occurrence: JP)
  Receive Date: 20180816
  Receipt Date: 20180816
  Transmission Date: 20181010
  Serious: Yes (Hospitalization, Other)
  Sender: FDA-Public Use
  Company Number: JP-MYLANLABS-2018M1061536

PATIENT
  Age: 8 Decade
  Sex: Male
  Weight: 56 kg

DRUGS (7)
  1. PREDNISOLONE. [Suspect]
     Active Substance: PREDNISOLONE
     Indication: RHEUMATOID ARTHRITIS
     Dosage: 8 MG, UNK
     Route: 065
  2. CLARITHROMYCIN. [Suspect]
     Active Substance: CLARITHROMYCIN
     Indication: ATYPICAL MYCOBACTERIAL INFECTION
     Dosage: 800 MG, UNK
     Route: 065
  3. SALAZOSULFAPYRIDINE [Suspect]
     Active Substance: SULFASALAZINE
     Indication: RHEUMATOID ARTHRITIS
     Dosage: 1000 MG, UNK
     Route: 065
  4. VORICONAZOLE. [Suspect]
     Active Substance: VORICONAZOLE
     Indication: BRONCHOPULMONARY ASPERGILLOSIS
     Dosage: 400 MG, UNK
     Route: 065
  5. AMBISOME [Concomitant]
     Active Substance: AMPHOTERICIN B
     Dosage: 150 MG, UNK
  6. ETHAMBUTOL [Suspect]
     Active Substance: ETHAMBUTOL HYDROCHLORIDE
     Indication: ATYPICAL MYCOBACTERIAL INFECTION
     Dosage: 750 MG, UNK
     Route: 065
  7. AMBISOME [Concomitant]
     Active Substance: AMPHOTERICIN B
     Indication: MUCORMYCOSIS
     Dosage: 250 MG, UNK
     Route: 065

REACTIONS (2)
  - Mucormycosis [Unknown]
  - Renal impairment [Unknown]
